FAERS Safety Report 8612024-9 (Version None)
Quarter: 2012Q3

REPORT INFORMATION
  Report Type: 
  Country: None (occurrence: None)
  Receive Date: 20120822
  Receipt Date: 20120817
  Transmission Date: 20120928
  Serious: Yes (Hospitalization)
  Sender: FDA-Public Use
  Company Number: IE-GLAXOSMITHKLINE-B0824143A

PATIENT
  Sex: Female
  Weight: 63 kg

DRUGS (1)
  1. ZYBAN [Suspect]
     Indication: EX-TOBACCO USER
     Route: 048
     Dates: start: 20120713, end: 20120723

REACTIONS (6)
  - THINKING ABNORMAL [None]
  - SUICIDAL IDEATION [None]
  - DEPRESSED MOOD [None]
  - FEELING ABNORMAL [None]
  - DECREASED APPETITE [None]
  - ANXIETY [None]
